FAERS Safety Report 5654128-9 (Version None)
Quarter: 2008Q1

REPORT INFORMATION
  Report Type: 
  Country: None (occurrence: None)
  Receive Date: 20080306
  Receipt Date: 20080303
  Transmission Date: 20080703
  Serious: Yes (Other)
  Sender: FDA-Public Use
  Company Number: IN-BOEHRINGER INGELHEIM GMBH, GERMANY-2008-BP-03151RO

PATIENT
  Age: 65 Year
  Sex: Male

DRUGS (7)
  1. ZOLPIDEM [Suspect]
     Indication: INSOMNIA
  2. MIRTAZAPINE [Concomitant]
     Indication: DEPRESSION
  3. ALPRAZOLAM [Concomitant]
     Indication: ANXIETY
  4. ECOSPRIN [Concomitant]
     Indication: CORONARY ARTERY DISEASE
  5. ENALAPRIL MALEATE [Concomitant]
     Indication: CORONARY ARTERY DISEASE
  6. ATORVASTATIN CALCIUM [Concomitant]
     Indication: CORONARY ARTERY DISEASE
  7. PANTOPRAZOLE [Concomitant]
     Indication: CORONARY ARTERY DISEASE

REACTIONS (4)
  - AGITATION [None]
  - DELIRIUM [None]
  - LOGORRHOEA [None]
  - MEMORY IMPAIRMENT [None]
